FAERS Safety Report 25402621 (Version 3)
Quarter: 2025Q3

REPORT INFORMATION
  Report Type: Spontaneous
  Country: EU (occurrence: EU)
  Receive Date: 20250605
  Receipt Date: 20250707
  Transmission Date: 20251020
  Serious: Yes (Death, Hospitalization)
  Sender: MYLAN
  Company Number: EU-CHEPLA-2025006489

PATIENT
  Age: 6 Decade
  Sex: Male

DRUGS (21)
  1. LOPERAMIDE [Suspect]
     Active Substance: LOPERAMIDE
     Indication: Diarrhoea
  2. LINEZOLID [Suspect]
     Active Substance: LINEZOLID
     Indication: Pseudomonas infection
     Dosage: 600 MILLIGRAM, BID
  3. MEROPENEM [Suspect]
     Active Substance: MEROPENEM
     Indication: Pseudomonas infection
     Dosage: 1 GRAM, TID (THRICE DAILY)
  4. CHOLESTYRAMINE [Suspect]
     Active Substance: CHOLESTYRAMINE
     Indication: Diarrhoea
  5. METHYLPREDNISOLONE [Suspect]
     Active Substance: METHYLPREDNISOLONE
     Indication: Enterocolitis
     Dosage: 60 MILLIGRAM, QD
  6. GANCICLOVIR [Concomitant]
     Active Substance: GANCICLOVIR
     Indication: Cytomegalovirus enterocolitis
  7. BENDAMUSTINE [Concomitant]
     Active Substance: BENDAMUSTINE
     Indication: Chronic lymphocytic leukaemia
     Dosage: 90 MILLIGRAM/SQ. METER, QD (ON DAYS 1 AND 2)
  8. BENDAMUSTINE [Concomitant]
     Active Substance: BENDAMUSTINE
     Indication: Lymphoma
     Dosage: 90 MILLIGRAM/SQ. METER, 28D CYCLE
  9. PREDNISOLONE [Concomitant]
     Active Substance: PREDNISOLONE
     Indication: Iridocyclitis
     Dosage: 17.5 MILLIGRAM, QD
  10. PREDNISOLONE [Concomitant]
     Active Substance: PREDNISOLONE
     Indication: Scleritis
     Dosage: 10 MILLIGRAM, QD
  11. PREDNISOLONE [Concomitant]
     Active Substance: PREDNISOLONE
     Indication: Lymphoma
  12. RITUXIMAB [Concomitant]
     Active Substance: RITUXIMAB
     Indication: Enterocolitis
     Dosage: 375 MILLIGRAM/SQ. METER, QD (DAY 1)
  13. RITUXIMAB [Concomitant]
     Active Substance: RITUXIMAB
     Indication: Lymphoma
  14. OPIUM [Concomitant]
     Active Substance: OPIUM
     Indication: Abdominal pain
  15. INFLIXIMAB [Concomitant]
     Active Substance: INFLIXIMAB
     Indication: Enterocolitis
     Dosage: 10 MILLIGRAM/KILOGRAM, BIWEEKLY (14 DAYS)
  16. PENICILLIN G [Concomitant]
     Active Substance: PENICILLIN G
     Indication: Norovirus infection
     Dosage: 3 GRAM, QID
  17. GENTAMICIN [Concomitant]
     Active Substance: GENTAMICIN
     Indication: Norovirus infection
     Dosage: 6 MILLIGRAM/KILOGRAM, QD
  18. METHOTREXATE [Concomitant]
     Active Substance: METHOTREXATE
  19. PIPERACILLIN SODIUM\TAZOBACTAM SODIUM [Concomitant]
     Active Substance: PIPERACILLIN SODIUM\TAZOBACTAM SODIUM
     Indication: Escherichia infection
     Dosage: UNK, QID (4 G/0.5 G)
  20. Immunoglobulin [Concomitant]
     Indication: Hypogammaglobulinaemia
  21. Immunoglobulin [Concomitant]
     Indication: Infection

REACTIONS (1)
  - Drug ineffective [Fatal]
